FAERS Safety Report 5214780-9 (Version None)
Quarter: 2007Q1

REPORT INFORMATION
  Report Type: 
  Country: None (occurrence: None)
  Receive Date: 20061113
  Receipt Date: 20060511
  Transmission Date: 20070707
  Serious: Yes (Death)
  Sender: FDA-Public Use
  Company Number: US-JNJFOC-20060203854

PATIENT
  Age: 62 Year
  Sex: Male
  Weight: 90.7194 kg

DRUGS (31)
  1. LEVAQUIN [Suspect]
     Indication: BACTERIAL INFECTION
     Dosage: 250 MG, 1 IN 1 DAY, INTRAVENOUS
     Route: 042
     Dates: start: 20030922, end: 20030924
  2. LEVAQUIN [Suspect]
     Indication: BACTERIAL INFECTION
     Dosage: 250 MG, 1 IN 1 DAY, INTRAVENOUS
     Route: 042
     Dates: start: 20031022, end: 20031024
  3. CEPHALEXIN [Suspect]
     Indication: DRUG USE FOR UNKNOWN INDICATION
  4. ALLOPURINOL [Suspect]
     Indication: DRUG USE FOR UNKNOWN INDICATION
  5. ZOSYN [Suspect]
     Indication: DRUG USE FOR UNKNOWN INDICATION
  6. CIPROFLOXACIN [Suspect]
     Indication: DRUG USE FOR UNKNOWN INDICATION
  7. CLARITIN [Concomitant]
  8. PROTONIX [Concomitant]
  9. ZOLOFT [Concomitant]
  10. AMBIEN [Concomitant]
  11. ENSURE (ENSURE) [Concomitant]
  12. HYDROXYZINE [Concomitant]
  13. LASIX [Concomitant]
  14. ALOE VESTA (ALOES EXTRACT) [Concomitant]
  15. CALMOSEPTINE (CALMOGASTRIN) [Concomitant]
  16. REGLAN [Concomitant]
  17. CORTISPORIN OTIC (BACISPORIN) [Concomitant]
  18. NYSTATIN SUSPENSION (NYSTATIN) [Concomitant]
  19. PHENERGAN (PROMETHAZINE HYDROCHLORIDE) [Concomitant]
  20. ZOLOFT [Concomitant]
  21. TYLENOL [Concomitant]
  22. INSULIN (INSULIN) [Concomitant]
  23. ENALAPRIL MALEATE [Concomitant]
  24. CARAFATE [Concomitant]
  25. POTASSIUM (POTASSIUM) [Concomitant]
  26. ISOSORBIDE (ISOSORBIDE) [Concomitant]
  27. COUMADIN [Concomitant]
  28. DIGOXIN [Concomitant]
  29. ATENOLOL [Concomitant]
  30. NEXIUM [Concomitant]
  31. HYDROCODONE BITARTRATE [Concomitant]

REACTIONS (2)
  - RENAL FAILURE [None]
  - STEVENS-JOHNSON SYNDROME [None]
